FAERS Safety Report 21777906 (Version 7)
Quarter: 2023Q1

REPORT INFORMATION
  Report Type: Spontaneous
  Country: HR (occurrence: None)
  Receive Date: 20221226
  Receipt Date: 20230216
  Transmission Date: 20230418
  Serious: Yes (Other)
  Sender: FDA-Public Use
  Company Number: 2022A410786

PATIENT
  Age: 73 Year
  Sex: Male
  Weight: 105 kg

DRUGS (49)
  1. ROSUVASTATIN [Suspect]
     Active Substance: ROSUVASTATIN
     Indication: Product used for unknown indication
     Dosage: 20.0MG UNKNOWN
  2. ROSUVASTATIN [Suspect]
     Active Substance: ROSUVASTATIN
     Indication: Product used for unknown indication
     Dosage: 10.0MG UNKNOWN
  3. ROSUVASTATIN [Suspect]
     Active Substance: ROSUVASTATIN
     Indication: Product used for unknown indication
     Dosage: 10.0MG UNKNOWN
  4. ROSUVASTATIN [Suspect]
     Active Substance: ROSUVASTATIN
     Indication: Product used for unknown indication
     Dosage: 20.0MG UNKNOWN
  5. RAMIPRIL [Suspect]
     Active Substance: RAMIPRIL
     Indication: Product used for unknown indication
     Dosage: 2.5MG UNKNOWN
  6. RAMIPRIL [Suspect]
     Active Substance: RAMIPRIL
     Indication: Product used for unknown indication
     Dosage: 5.0MG UNKNOWN
  7. RAMIPRIL [Suspect]
     Active Substance: RAMIPRIL
     Indication: Product used for unknown indication
     Dosage: 3.0MG UNKNOWN
  8. RAMIPRIL [Suspect]
     Active Substance: RAMIPRIL
     Indication: Product used for unknown indication
     Dosage: 3.0MG UNKNOWN
  9. RAMIPRIL [Suspect]
     Active Substance: RAMIPRIL
     Indication: Product used for unknown indication
     Dosage: 5.0MG UNKNOWN
  10. RAMIPRIL [Suspect]
     Active Substance: RAMIPRIL
     Indication: Product used for unknown indication
     Dosage: 3.0MG UNKNOWN
  11. METOPROLOL [Suspect]
     Active Substance: METOPROLOL
     Indication: Product used for unknown indication
     Dosage: 50 MG, OTHER/UNSPECIFIED50.0MG UNKNOWN
  12. METOPROLOL [Suspect]
     Active Substance: METOPROLOL
     Indication: Product used for unknown indication
     Dosage: 25 MG, OTHER/UNSPECIFIED25.0MG UNKNOWN
  13. METOPROLOL [Suspect]
     Active Substance: METOPROLOL
     Indication: Product used for unknown indication
     Dosage: 50 MG, OTHER/UNSPECIFIED50.0MG UNKNOWN
  14. METOPROLOL [Suspect]
     Active Substance: METOPROLOL
     Indication: Product used for unknown indication
     Dosage: 25 MG, OTHER/UNSPECIFIED25.0MG UNKNOWN
  15. METOPROLOL TARTRATE [Suspect]
     Active Substance: METOPROLOL TARTRATE
     Indication: Product used for unknown indication
     Dosage: 50 MG, OTHER/UNSPECIFIED50.0MG UNKNOWN
  16. METOPROLOL TARTRATE [Suspect]
     Active Substance: METOPROLOL TARTRATE
     Indication: Product used for unknown indication
     Dosage: 25 MG, OTHER/UNSPECIFIED25.0MG UNKNOWN
  17. DABIGATRAN [Suspect]
     Active Substance: DABIGATRAN
     Indication: Product used for unknown indication
  18. DABIGATRAN [Suspect]
     Active Substance: DABIGATRAN
     Indication: Product used for unknown indication
  19. DABIGATRAN [Suspect]
     Active Substance: DABIGATRAN
     Indication: Product used for unknown indication
  20. CLOPIDOGREL [Suspect]
     Active Substance: CLOPIDOGREL BISULFATE
     Indication: Product used for unknown indication
     Dosage: 75.0MG UNKNOWN
     Dates: end: 2016
  21. CLOPIDOGREL [Suspect]
     Active Substance: CLOPIDOGREL BISULFATE
     Indication: Product used for unknown indication
     Dosage: 100.0MG UNKNOWN
     Dates: end: 2016
  22. AMIODARONE HYDROCHLORIDE [Suspect]
     Active Substance: AMIODARONE HYDROCHLORIDE
     Indication: Product used for unknown indication
     Dosage: 200.0MG UNKNOWN
  23. AMIODARONE HYDROCHLORIDE [Suspect]
     Active Substance: AMIODARONE HYDROCHLORIDE
     Indication: Product used for unknown indication
     Dosage: 100.0MG UNKNOWN
  24. AMIODARONE HYDROCHLORIDE [Suspect]
     Active Substance: AMIODARONE HYDROCHLORIDE
     Indication: Product used for unknown indication
     Dosage: 200.0MG UNKNOWN
  25. AMIODARONE HYDROCHLORIDE [Suspect]
     Active Substance: AMIODARONE HYDROCHLORIDE
     Indication: Product used for unknown indication
     Dosage: 200.0MG UNKNOWN
  26. AMIODARONE HYDROCHLORIDE [Suspect]
     Active Substance: AMIODARONE HYDROCHLORIDE
     Indication: Product used for unknown indication
     Dosage: 100.0MG UNKNOWN
  27. AMIODARONE HYDROCHLORIDE [Suspect]
     Active Substance: AMIODARONE HYDROCHLORIDE
     Indication: Product used for unknown indication
     Dosage: 100.0MG UNKNOWN
  28. DALTEPARIN SODIUM [Suspect]
     Active Substance: DALTEPARIN SODIUM
     Indication: Product used for unknown indication
     Dosage: 0.5 - DAILY 1000 IU DAILY
  29. DALTEPARIN SODIUM [Suspect]
     Active Substance: DALTEPARIN SODIUM
     Indication: Product used for unknown indication
     Dosage: 0.5 - DAILY 5000 IU DAILY
  30. ASPIRIN [Suspect]
     Active Substance: ASPIRIN
     Indication: Product used for unknown indication
     Dosage: 100.0MG UNKNOWN
     Dates: end: 2016
  31. ASPIRIN [Suspect]
     Active Substance: ASPIRIN
     Indication: Product used for unknown indication
     Dosage: 100.0MG UNKNOWN
     Dates: end: 2016
  32. ASPIRIN [Suspect]
     Active Substance: ASPIRIN
     Indication: Product used for unknown indication
     Dosage: 100.0MG UNKNOWN
     Dates: end: 2016
  33. APIXABAN [Suspect]
     Active Substance: APIXABAN
     Indication: Product used for unknown indication
     Dosage: 5 MG, 2X/DAY
     Route: 048
  34. APIXABAN [Suspect]
     Active Substance: APIXABAN
     Indication: Product used for unknown indication
     Dosage: 0.5 - DAILY
     Route: 048
  35. APIXABAN [Suspect]
     Active Substance: APIXABAN
     Indication: Product used for unknown indication
     Dosage: 0.5 - DAILY
     Route: 048
  36. PANTOPRAZOLE [Suspect]
     Active Substance: PANTOPRAZOLE
     Indication: Product used for unknown indication
     Dosage: 40.0MG UNKNOWN
  37. PANTOPRAZOLE [Suspect]
     Active Substance: PANTOPRAZOLE
     Indication: Product used for unknown indication
     Dosage: 40.0MG UNKNOWN
  38. PANTOPRAZOLE [Suspect]
     Active Substance: PANTOPRAZOLE
     Indication: Product used for unknown indication
     Dosage: 40.0MG UNKNOWN
  39. WARFARIN SODIUM [Suspect]
     Active Substance: WARFARIN SODIUM
     Indication: Product used for unknown indication
     Dosage: 20.0MG UNKNOWN
  40. WARFARIN SODIUM [Suspect]
     Active Substance: WARFARIN SODIUM
     Indication: Product used for unknown indication
     Dosage: 20.0MG UNKNOWN
  41. WARFARIN SODIUM [Suspect]
     Active Substance: WARFARIN SODIUM
     Indication: Product used for unknown indication
     Dosage: 20.0MG UNKNOWN
  42. MESALAMINE [Suspect]
     Active Substance: MESALAMINE
     Indication: Product used for unknown indication
     Dosage: 100.0MG UNKNOWN
     Dates: start: 2016
  43. MESALAMINE [Suspect]
     Active Substance: MESALAMINE
     Indication: Product used for unknown indication
     Dosage: 100.0MG UNKNOWN
     Dates: start: 2016
  44. DALTEPARIN [Suspect]
     Active Substance: DALTEPARIN
     Indication: Product used for unknown indication
     Dosage: UNK, QD, 0.5 - DAILY
  45. DALTEPARIN [Suspect]
     Active Substance: DALTEPARIN
     Indication: Product used for unknown indication
     Dosage: UNK, BID
  46. DALTEPARIN [Suspect]
     Active Substance: DALTEPARIN
     Indication: Product used for unknown indication
     Dosage: 5000 IU
  47. CLOPIDOGREL BISULFATE [Suspect]
     Active Substance: CLOPIDOGREL BISULFATE
     Indication: Product used for unknown indication
     Dosage: 75.0MG UNKNOWN
     Dates: end: 2016
  48. CLOPIDOGREL BISULFATE [Suspect]
     Active Substance: CLOPIDOGREL BISULFATE
     Indication: Product used for unknown indication
     Dosage: 100.0MG UNKNOWN
     Dates: end: 2016
  49. PANTOPRAZOLE SODIUM [Suspect]
     Active Substance: PANTOPRAZOLE SODIUM
     Indication: Product used for unknown indication
     Dosage: 40.0MG UNKNOWN

REACTIONS (4)
  - Atrial fibrillation [Unknown]
  - Anastomotic infection [Unknown]
  - Adenocarcinoma of colon [Unknown]
  - Increased tendency to bruise [Unknown]

NARRATIVE: CASE EVENT DATE: 20160101
